FAERS Safety Report 5345980-5 (Version None)
Quarter: 2007Q2

REPORT INFORMATION
  Report Type: 
  Country: None (occurrence: None)
  Receive Date: 20070430
  Receipt Date: 20070313
  Transmission Date: 20071010
  Serious: No
  Sender: FDA-Public Use
  Company Number: 261631

PATIENT
  Age: 47 Year
  Sex: Female
  Weight: 96.1 kg

DRUGS (1)
  1. LEVEMIR [Suspect]
     Indication: DIABETES MELLITUS
     Dosage: 55 IU, QD, SUBCUTANEOUS
     Route: 058
     Dates: start: 20060901

REACTIONS (1)
  - BLOOD GLUCOSE FLUCTUATION [None]
